FAERS Safety Report 8246083-2 (Version None)
Quarter: 2012Q1

REPORT INFORMATION
  Report Type: 
  Country: None (occurrence: None)
  Receive Date: 20120328
  Receipt Date: 20120328
  Transmission Date: 20120608
  Serious: Yes (Congenital Anomaly)
  Sender: FDA-Public Use
  Company Number: None

PATIENT
  Age: 78 Year
  Sex: Female
  Weight: 136.0791 kg

DRUGS (2)
  1. WARFARIN SODIUM [Suspect]
     Indication: PULMONARY THROMBOSIS
     Dosage: 5MG 6 TIMES WK ; 71/2 MG 1 TIME WK
  2. WARFARIN SODIUM [Suspect]
     Indication: THROMBOSIS
     Dosage: 5MG 6 TIMES WK ; 71/2 MG 1 TIME WK

REACTIONS (4)
  - SKIN DISCOLOURATION [None]
  - BLISTER [None]
  - PAIN [None]
  - HYPOAESTHESIA [None]
